FAERS Safety Report 8955252 (Version 2)
Quarter: 2013Q1

REPORT INFORMATION
  Report Type: Spontaneous
  Country: IT (occurrence: IT)
  Receive Date: 20121207
  Receipt Date: 20130124
  Transmission Date: 20140127
  Serious: Yes (Disabling)
  Sender: FDA-Public Use
  Company Number: IT-ROCHE-1164907

PATIENT
  Age: 77 Year
  Sex: Female

DRUGS (13)
  1. BONVIVA [Suspect]
     Indication: OSTEOPOROSIS
     Route: 048
     Dates: start: 20090615, end: 20110615
  2. SIMVASTATINA [Concomitant]
     Route: 065
  3. LANSOPRAZOLE [Concomitant]
  4. ZANEDIP [Concomitant]
     Route: 065
  5. NITROCOR [Concomitant]
  6. MEDROL [Concomitant]
  7. ANSIOLIN [Concomitant]
  8. COAPROVEL [Concomitant]
     Route: 065
  9. PLAQUENIL [Concomitant]
  10. DELTACORTENE [Concomitant]
  11. ASPIRINETTA [Concomitant]
  12. ARTHROTEC [Concomitant]
  13. METFORMIN [Concomitant]
     Route: 065

REACTIONS (1)
  - Osteonecrosis [Not Recovered/Not Resolved]
